FAERS Safety Report 6407734-8 (Version None)
Quarter: 2009Q4

REPORT INFORMATION
  Report Type: 
  Country: None (occurrence: None)
  Receive Date: 20091020
  Receipt Date: 20091014
  Transmission Date: 20100525
  Serious: Yes (Hospitalization, Other)
  Sender: FDA-Public Use
  Company Number: JP-AVENTIS-200911423JP

PATIENT
  Age: 62 Year
  Sex: Male
  Weight: 57.5 kg

DRUGS (12)
  1. TAXOTERE [Suspect]
     Route: 041
     Dates: start: 20090430, end: 20090430
  2. PREDNISOLONE [Concomitant]
     Route: 048
     Dates: start: 20090430, end: 20090520
  3. ESTRACYT                           /00327002/ [Concomitant]
     Dosage: DOSE: 4 CAP
     Route: 048
     Dates: start: 20081202, end: 20090305
  4. ZOMETA [Concomitant]
     Route: 042
     Dates: start: 20090413
  5. ARTIST [Concomitant]
     Route: 048
  6. ASPIRIN [Concomitant]
     Route: 048
  7. BEZATOL [Concomitant]
     Route: 048
  8. LONGES [Concomitant]
     Route: 048
  9. TAKEPRON [Concomitant]
     Route: 048
  10. NOVAMIN                            /00013301/ [Concomitant]
     Route: 048
  11. VOLTAREN-XR [Concomitant]
     Route: 048
  12. MAGLAX [Concomitant]
     Route: 048

REACTIONS (3)
  - HYPONATRAEMIA [None]
  - INAPPROPRIATE ANTIDIURETIC HORMONE SECRETION [None]
  - NEUTROPHIL COUNT DECREASED [None]
